FAERS Safety Report 25415207 (Version 1)
Quarter: 2025Q2

REPORT INFORMATION
  Report Type: Spontaneous
  Country: US (occurrence: US)
  Receive Date: 20250609
  Receipt Date: 20250609
  Transmission Date: 20250717
  Serious: No
  Sender: Haleon PLC
  Company Number: US-HALEON-2245798

PATIENT
  Sex: Female

DRUGS (1)
  1. NICORETTE FRUIT CHILL [Suspect]
     Active Substance: NICOTINE
     Indication: Product used for unknown indication
     Dosage: DAILY FOR A YEAR OR TWO

REACTIONS (1)
  - Cough [Unknown]
